FAERS Safety Report 10871509 (Version 1)
Quarter: 2015Q1

REPORT INFORMATION
  Report Type: Spontaneous
  Country: US (occurrence: None)
  Receive Date: 20150223
  Receipt Date: 20150223
  Transmission Date: 20150721
  Serious: Yes (Disabling)
  Sender: FDA-Public Use
  Company Number: None

PATIENT
  Age: 48 Year
  Sex: Male
  Weight: 124.74 kg

DRUGS (1)
  1. LEVOFLOXACIN 750 MG [Suspect]
     Active Substance: LEVOFLOXACIN
     Indication: SKIN INFECTION
     Dosage: 1/2 PILL
     Route: 048

REACTIONS (8)
  - Optic neuropathy [None]
  - Apparent death [None]
  - Pain in extremity [None]
  - Renal impairment [None]
  - Gait disturbance [None]
  - Myalgia [None]
  - Skin infection [None]
  - Disease recurrence [None]

NARRATIVE: CASE EVENT DATE: 20150221
